FAERS Safety Report 9070672 (Version 1)
Quarter: 2013Q1

REPORT INFORMATION
  Report Type: Spontaneous
  Country: PH (occurrence: PH)
  Receive Date: 20130206
  Receipt Date: 20130206
  Transmission Date: 20140127
  Serious: Yes (Life-Threatening, Hospitalization)
  Sender: FDA-Public Use
  Company Number: PH-B.I. PHARMACEUTICALS,INC./RIDGEFIELD-2013-CS-00129RP

PATIENT
  Age: 55 Year
  Sex: Female

DRUGS (6)
  1. TRAJENTA [Suspect]
     Indication: DIABETES MELLITUS
     Dosage: 5 MG
     Route: 048
     Dates: start: 20130112, end: 20130119
  2. OLMESARTAN [Concomitant]
     Indication: HYPERTENSION
     Dosage: 10 MG
  3. AMLODIPINE [Concomitant]
     Indication: HYPERTENSION
     Dosage: 5 MG
  4. IMDUR [Concomitant]
     Indication: CHEST PAIN
     Dosage: 60 MG
  5. ALLOPURINOL [Concomitant]
     Indication: HYPERURICAEMIA
     Dosage: 100 MG
  6. FERROUS SULFATE [Concomitant]
     Indication: ANAEMIA

REACTIONS (1)
  - Myocardial infarction [Not Recovered/Not Resolved]
